FAERS Safety Report 4466941-4 (Version None)
Quarter: 2004Q3

REPORT INFORMATION
  Report Type: 
  Country: None (occurrence: None)
  Receive Date: 20040930
  Receipt Date: 20040914
  Transmission Date: 20050211
  Serious: Yes (Hospitalization)
  Sender: FDA-Public Use
  Company Number: 195922

PATIENT
  Age: 53 Year
  Sex: Female
  Weight: 74.8435 kg

DRUGS (7)
  1. AVONEX [Suspect]
     Indication: MULTIPLE SCLEROSIS
     Dosage: 30 MCG QW IM
     Route: 030
     Dates: start: 19970101, end: 20010101
  2. AVONEX [Suspect]
     Indication: MULTIPLE SCLEROSIS
     Dosage: 30 MCG QW IM
     Route: 030
     Dates: start: 20010701, end: 20040801
  3. AVONEX [Suspect]
     Indication: MULTIPLE SCLEROSIS
     Dosage: 30 MCG QW IM
     Route: 030
     Dates: start: 20040101, end: 20040801
  4. AVONEX [Suspect]
     Indication: MULTIPLE SCLEROSIS
     Dates: start: 20040801, end: 20040801
  5. AVONEX [Suspect]
     Indication: MULTIPLE SCLEROSIS
     Dosage: 30 MCG QW IM
     Route: 030
     Dates: start: 20040801, end: 20040903
  6. ZOLOFT [Concomitant]
  7. PREMARIN [Concomitant]

REACTIONS (19)
  - ABDOMINAL RIGIDITY [None]
  - ARTHRITIS [None]
  - CHILLS [None]
  - COLLAPSE OF LUNG [None]
  - CONDITION AGGRAVATED [None]
  - DEPRESSION [None]
  - ERYTHEMA NODOSUM [None]
  - GASTRIC BYPASS [None]
  - HEADACHE [None]
  - INFLUENZA LIKE ILLNESS [None]
  - INTERVERTEBRAL DISC DISORDER [None]
  - MEMORY IMPAIRMENT [None]
  - MULTIPLE SCLEROSIS [None]
  - NUCLEAR MAGNETIC RESONANCE IMAGING BRAIN ABNORMAL [None]
  - PAIN [None]
  - PNEUMONIA [None]
  - POST PROCEDURAL COMPLICATION [None]
  - THYROID DISORDER [None]
  - WEIGHT INCREASED [None]
